FAERS Safety Report 5985869-1 (Version None)
Quarter: 2008Q4

REPORT INFORMATION
  Report Type: 
  Country: None (occurrence: None)
  Receive Date: 20081209
  Receipt Date: 20081128
  Transmission Date: 20090506
  Serious: Yes (Other)
  Sender: FDA-Public Use
  Company Number: SE-RANBAXY-2008RR-19623

PATIENT
  Age: 73 Year
  Sex: Female

DRUGS (6)
  1. ASPIRIN [Suspect]
  2. RAMIPRIL [Suspect]
  3. SOTALOL HCL [Suspect]
  4. ROFECOXIB [Suspect]
  5. SPIRONOLACTONE [Suspect]
  6. MIDAZOLAM HCL [Concomitant]
     Indication: SEDATION

REACTIONS (1)
  - COLITIS COLLAGENOUS [None]
